FAERS Safety Report 4492481-2 (Version None)
Quarter: 2004Q4

REPORT INFORMATION
  Report Type: 
  Country: None (occurrence: None)
  Receive Date: 20041029
  Receipt Date: 20041020
  Transmission Date: 20050328
  Serious: Yes (Other)
  Sender: FDA-Public Use
  Company Number: 2004081088

PATIENT
  Sex: Male

DRUGS (3)
  1. LIPITOR [Suspect]
     Indication: ILL-DEFINED DISORDER
  2. VITAMINS (VITAMINS) [Suspect]
     Indication: ILL-DEFINED DISORDER
  3. ALLOTHER THERAPEUTIC PRODUCTS [Concomitant]

REACTIONS (1)
  - COELIAC DISEASE [None]
